FAERS Safety Report 19321669 (Version 1)
Quarter: 2021Q2

REPORT INFORMATION
  Report Type: Spontaneous
  Country: US (occurrence: US)
  Receive Date: 20210528
  Receipt Date: 20210528
  Transmission Date: 20210717
  Serious: Yes (Hospitalization)
  Sender: FDA-Public Use
  Company Number: None

PATIENT
  Age: 39 Year
  Sex: Female
  Weight: 68 kg

DRUGS (2)
  1. ETESEVIMAB. [Suspect]
     Active Substance: ETESEVIMAB
     Indication: COVID-19
     Dosage: ?          OTHER FREQUENCY:ONCE;?
     Route: 041
     Dates: start: 20210526, end: 20210526
  2. BAMLANIVIMAB. [Suspect]
     Active Substance: BAMLANIVIMAB
     Indication: COVID-19
     Dosage: ?          OTHER FREQUENCY:ONCE;?
     Route: 041
     Dates: start: 20210526, end: 20210526

REACTIONS (8)
  - Nausea [None]
  - Drug hypersensitivity [None]
  - Throat irritation [None]
  - Swollen tongue [None]
  - Chest discomfort [None]
  - Dyspnoea [None]
  - Headache [None]
  - Cough [None]

NARRATIVE: CASE EVENT DATE: 20210526
